FAERS Safety Report 23402153 (Version 1)
Quarter: 2024Q1

REPORT INFORMATION
  Report Type: Spontaneous
  Country: US (occurrence: US)
  Receive Date: 20240115
  Receipt Date: 20240115
  Transmission Date: 20240410
  Serious: Yes (Other)
  Sender: FDA-Public Use
  Company Number: US-BAUSCH-BL-2024-000465

PATIENT
  Age: 84 Year
  Sex: Female

DRUGS (1)
  1. RENOVA [Suspect]
     Active Substance: TRETINOIN
     Indication: Skin wrinkling
     Route: 065

REACTIONS (2)
  - Knee arthroplasty [Unknown]
  - Sunburn [Unknown]
